FAERS Safety Report 17440931 (Version 4)
Quarter: 2020Q3

REPORT INFORMATION
  Report Type: Spontaneous
  Country: CN (occurrence: CN)
  Receive Date: 20200220
  Receipt Date: 20200327
  Transmission Date: 20201105
  Serious: Yes (Hospitalization)
  Sender: FDA-Public Use
  Company Number: CN-CELGENEUS-CHN-20200205595

PATIENT
  Age: 43 Year
  Sex: Female
  Weight: 56 kg

DRUGS (21)
  1. ACETYLCYSTEINE. [Concomitant]
     Active Substance: ACETYLCYSTEINE
     Indication: PRODUCT USED FOR UNKNOWN INDICATION
     Dosage: 1.2 GRAM
     Route: 048
     Dates: start: 20200129, end: 20200131
  2. SODIUM CHLORIDE. [Concomitant]
     Active Substance: SODIUM CHLORIDE
     Indication: PRODUCT USED FOR UNKNOWN INDICATION
     Route: 041
     Dates: start: 20200130, end: 20200130
  3. EUCALYPTOL LIMONENE [Concomitant]
     Indication: PRODUCT USED FOR UNKNOWN INDICATION
     Dosage: .9 GRAM
     Route: 048
     Dates: start: 20200129, end: 20200131
  4. GLUTATHIONE [Concomitant]
     Active Substance: GLUTATHIONE
     Dosage: 1.8 GRAM
     Route: 041
     Dates: start: 20200205
  5. SERPLULIMAB. [Suspect]
     Active Substance: SERPLULIMAB
     Indication: NON-SMALL CELL LUNG CANCER
     Dosage: 252 MILLIGRAM
     Route: 041
     Dates: start: 20200116, end: 20200116
  6. DI YU SHENG BAI [Concomitant]
     Indication: NEUTROPHIL COUNT DECREASED
     Dosage: 1.2 GRAM
     Route: 048
     Dates: start: 20200205
  7. GLYCYRRHIZIN [Concomitant]
     Active Substance: GLYCYRRHIZIN
     Indication: GAMMA-GLUTAMYLTRANSFERASE INCREASED
     Dosage: 75 MILLIGRAM
     Route: 048
     Dates: start: 20200129, end: 20200131
  8. GRANISETRON HYDROCHLORIDE. [Concomitant]
     Active Substance: GRANISETRON HYDROCHLORIDE
     Indication: PRODUCT USED FOR UNKNOWN INDICATION
     Route: 041
     Dates: start: 20200130, end: 20200130
  9. GLUTATHIONE [Concomitant]
     Active Substance: GLUTATHIONE
     Indication: PRODUCT USED FOR UNKNOWN INDICATION
     Route: 041
     Dates: start: 20200130, end: 20200130
  10. ABRAXANE [Suspect]
     Active Substance: PACLITAXEL
     Indication: NON-SMALL CELL LUNG CANCER
     Dosage: 153 MILLIGRAM
     Route: 041
     Dates: start: 20200116, end: 20200130
  11. ABRAXANE [Suspect]
     Active Substance: PACLITAXEL
     Dosage: 156 MILLIGRAM
     Route: 041
     Dates: start: 20200213, end: 20200227
  12. CARBOPLATIN. [Suspect]
     Active Substance: CARBOPLATIN
     Indication: NON-SMALL CELL LUNG CANCER
     Dosage: 641 MILLIGRAM
     Route: 041
     Dates: start: 20200116, end: 20200116
  13. CARBOPLATIN. [Suspect]
     Active Substance: CARBOPLATIN
     Dosage: 641 MILLIGRAM
     Route: 041
     Dates: start: 20200213
  14. RECOMBINANT HUMAN GRANULOCYTE COLONY?STIMULATING FACTOR [Concomitant]
     Active Substance: GRANULOCYTE COLONY-STIMULATING FACTOR NOS
     Indication: WHITE BLOOD CELL COUNT DECREASED
     Route: 058
     Dates: start: 20200205, end: 20200205
  15. RECOMBINANT HUMAN GRANULOCYTE COLONY?STIMULATING FACTOR [Concomitant]
     Active Substance: GRANULOCYTE COLONY-STIMULATING FACTOR NOS
     Indication: NEUTROPHIL COUNT DECREASED
  16. CIMETIDINE [Concomitant]
     Active Substance: CIMETIDINE
     Indication: PRODUCT USED FOR UNKNOWN INDICATION
     Route: 041
     Dates: start: 20200130, end: 20200130
  17. CARBOPLATIN. [Suspect]
     Active Substance: CARBOPLATIN
     Dosage: REDUCED TO 75% OF THE PLANNNED DOSE
     Route: 041
  18. PINENE ENTERIC [Concomitant]
     Indication: PRODUCT USED FOR UNKNOWN INDICATION
     Dosage: .9 GRAM
     Route: 048
     Dates: start: 20200129, end: 20200131
  19. GLYCYRRHIZIN [Concomitant]
     Active Substance: GLYCYRRHIZIN
     Indication: ASPARTATE AMINOTRANSFERASE INCREASED
     Dosage: 60 MILLILITER
     Route: 041
     Dates: start: 20200205
  20. SERPLULIMAB. [Suspect]
     Active Substance: SERPLULIMAB
     Dosage: 252 MILLIGRAM
     Route: 041
     Dates: start: 20200213
  21. DI YU SHENG BAI [Concomitant]
     Indication: WHITE BLOOD CELL COUNT DECREASED
     Dosage: .6 GRAM
     Route: 048
     Dates: start: 20200129, end: 20200131

REACTIONS (1)
  - Drug-induced liver injury [Recovered/Resolved]

NARRATIVE: CASE EVENT DATE: 20200205
